FAERS Safety Report 10447057 (Version 1)
Quarter: 2014Q3

REPORT INFORMATION
  Report Type: Spontaneous
  Country: JP (occurrence: JP)
  Receive Date: 20140911
  Receipt Date: 20140911
  Transmission Date: 20150326
  Serious: Yes (Other)
  Sender: FDA-Public Use
  Company Number: JP-SA-2014SA122325

PATIENT
  Age: 20 Year
  Sex: Female

DRUGS (2)
  1. LANTUS [Suspect]
     Active Substance: INSULIN GLARGINE
     Indication: TYPE 2 DIABETES MELLITUS
     Route: 058
  2. LANTUS [Suspect]
     Active Substance: INSULIN GLARGINE
     Indication: TYPE 2 DIABETES MELLITUS
     Dosage: DOSE:142 UNIT(S)
     Route: 058

REACTIONS (5)
  - Ketoacidosis [Recovered/Resolved]
  - Nausea [Recovered/Resolved]
  - Gastroenteritis [Unknown]
  - Exposure during pregnancy [Unknown]
  - Feeding disorder [Recovered/Resolved]
